FAERS Safety Report 4972919-4 (Version None)
Quarter: 2006Q2

REPORT INFORMATION
  Report Type: 
  Country: None (occurrence: None)
  Receive Date: 20060414
  Receipt Date: 20060406
  Transmission Date: 20061013
  Serious: Yes (Hospitalization)
  Sender: FDA-Public Use
  Company Number: CH-AVENTIS-200613854GDDC

PATIENT
  Age: 43 Year
  Sex: Female

DRUGS (3)
  1. FLAGYL [Suspect]
     Route: 048
     Dates: start: 20060301, end: 20060302
  2. CLINDAMYCIN [Suspect]
     Route: 048
     Dates: start: 20060301, end: 20060302
  3. DAFALGAN [Suspect]
     Route: 048
     Dates: start: 20060301, end: 20060302

REACTIONS (13)
  - ABDOMINAL PAIN [None]
  - ABDOMINAL RIGIDITY [None]
  - ALCOHOL USE [None]
  - BLOOD BILIRUBIN INCREASED [None]
  - CYTOLYTIC HEPATITIS [None]
  - DRUG INTOLERANCE [None]
  - EAR PAIN [None]
  - HEPATIC TRAUMA [None]
  - HEPATITIS [None]
  - HEPATOCELLULAR DAMAGE [None]
  - INFLUENZA LIKE ILLNESS [None]
  - SELF-MEDICATION [None]
  - VOMITING [None]
